FAERS Safety Report 15264700 (Version 2)
Quarter: 2018Q3

REPORT INFORMATION
  Report Type: Spontaneous
  Country: DE (occurrence: DE)
  Receive Date: 20180810
  Receipt Date: 20180815
  Transmission Date: 20181010
  Serious: Yes (Hospitalization)
  Sender: FDA-Public Use
  Company Number: DE-TEVA-2018-DE-937661

PATIENT
  Age: 66 Year
  Sex: Male
  Weight: 175 kg

DRUGS (5)
  1. DEXAMETHASONE. [Suspect]
     Active Substance: DEXAMETHASONE
     Dosage: LAST DOSE PRIOR SAE 12?MAR?2015; 2 CYCLES
     Route: 065
     Dates: start: 20150208
  2. TEMSIROLIMUS [Suspect]
     Active Substance: TEMSIROLIMUS
     Dosage: LAST DOSE PRIOR SAE 10?MAR?2015; 2 CYCLES
     Route: 065
     Dates: start: 20150206
  3. CYTARABINE. [Suspect]
     Active Substance: CYTARABINE
     Dosage: LAST DOSE PRIOR SAE 13?MAR?2015; 2 CYCLES
     Route: 065
     Dates: start: 20150209
  4. RITUXIMAB. [Suspect]
     Active Substance: RITUXIMAB
     Dosage: LAST DOSE PRIOR SAE 11?MAR?2015; 2 CYCLES
     Route: 065
     Dates: start: 20150207
  5. CISPLATIN. [Suspect]
     Active Substance: CISPLATIN
     Dosage: LAST DOSE PRIOR SAE 12?MAR?2015; 2 CYCLES
     Route: 065
     Dates: start: 20150208

REACTIONS (1)
  - Renal failure [Recovered/Resolved]

NARRATIVE: CASE EVENT DATE: 20150315
